FAERS Safety Report 6773379-3 (Version None)
Quarter: 2010Q2

REPORT INFORMATION
  Report Type: 
  Country: None (occurrence: None)
  Receive Date: 20100614
  Receipt Date: 20100608
  Transmission Date: 20101027
  Serious: Yes (Other)
  Sender: FDA-Public Use
  Company Number: CL-126-2010

PATIENT
  Age: 27 Year
  Sex: Male

DRUGS (2)
  1. METRONIDAZOLE [Suspect]
     Indication: COLITIS
     Dosage: Q4-6H INTRAVENOUS
     Route: 042
     Dates: start: 20100502, end: 20100505
  2. UNSPECIFIED [Suspect]
     Indication: COLITIS
     Dates: start: 20100502, end: 20100504

REACTIONS (6)
  - EYE SWELLING [None]
  - INFLAMMATION [None]
  - LIP SWELLING [None]
  - PURULENT DISCHARGE [None]
  - SWELLING FACE [None]
  - URTICARIA [None]
